FAERS Safety Report 20025781 (Version 1)
Quarter: 2021Q4

REPORT INFORMATION
  Report Type: Spontaneous
  Country: ES (occurrence: PL)
  Receive Date: 20211102
  Receipt Date: 20211102
  Transmission Date: 20220303
  Serious: Yes (Hospitalization, Other)
  Sender: FDA-Public Use
  Company Number: None

PATIENT
  Age: 60 Year
  Sex: Male

DRUGS (13)
  1. SERTRALINE [Interacting]
     Active Substance: SERTRALINE HYDROCHLORIDE
     Indication: Depression
     Dosage: 50 MG, QD
     Route: 048
     Dates: start: 2016
  2. MIRTAZAPINE [Interacting]
     Active Substance: MIRTAZAPINE
     Indication: Insomnia
     Dosage: 15 MG, QD
     Route: 048
     Dates: start: 20180609, end: 20180613
  3. TORSEMIDE [Suspect]
     Active Substance: TORSEMIDE
     Indication: Cardiac failure chronic
     Dosage: 10 MG
     Route: 065
  4. RAMIPRIL [Suspect]
     Active Substance: RAMIPRIL
     Indication: Cardiac failure chronic
     Dosage: 2.5 MG, QD
     Route: 065
  5. PANTOPRAZOLE [Suspect]
     Active Substance: PANTOPRAZOLE
     Indication: Cardiac failure chronic
     Dosage: UNK
     Route: 065
  6. ROSUVASTATIN [Suspect]
     Active Substance: ROSUVASTATIN
     Indication: Cardiac failure chronic
     Dosage: 40 MG, QD
     Route: 065
  7. FUROSEMIDE [Suspect]
     Active Substance: FUROSEMIDE
     Indication: Cardiac failure chronic
     Dosage: 20-40 MG
     Route: 065
  8. ASPIRIN [Suspect]
     Active Substance: ASPIRIN
     Indication: Cardiac failure chronic
     Dosage: 75 MG, QD
     Route: 065
  9. APIXABAN [Suspect]
     Active Substance: APIXABAN
     Indication: Cardiac failure chronic
     Dosage: 5 MG, QD
     Route: 065
  10. CLOPIDOGREL BISULFATE [Suspect]
     Active Substance: CLOPIDOGREL BISULFATE
     Indication: Cardiac failure chronic
     Dosage: 75 MG, QD
     Route: 065
  11. BISOPROLOL [Suspect]
     Active Substance: BISOPROLOL
     Indication: Cardiac failure chronic
     Dosage: 2.5 MG, QD
     Route: 065
  12. LORAZEPAM [Concomitant]
     Active Substance: LORAZEPAM
     Indication: Insomnia
     Dosage: 1 MG, QD
     Route: 048
     Dates: start: 2016, end: 20180609
  13. ENTRESTO [Concomitant]
     Active Substance: SACUBITRIL\VALSARTAN
     Indication: Product used for unknown indication
     Dosage: UNK
     Route: 065

REACTIONS (8)
  - Serotonin syndrome [Recovered/Resolved]
  - Cardiac failure [Recovering/Resolving]
  - Atrial fibrillation [Unknown]
  - Myocardial infarction [Unknown]
  - Dyslipidaemia [Unknown]
  - Intentional product use issue [Unknown]
  - Product use in unapproved indication [Unknown]
  - Off label use [Unknown]

NARRATIVE: CASE EVENT DATE: 20180609
